FAERS Safety Report 10247965 (Version 2)
Quarter: 2014Q3

REPORT INFORMATION
  Report Type: Spontaneous
  Country: US (occurrence: US)
  Receive Date: 20140619
  Receipt Date: 20140722
  Transmission Date: 20150326
  Serious: Yes (Hospitalization, Other)
  Sender: FDA-Public Use
  Company Number: US-GILEAD-2014-0106176

PATIENT
  Sex: Female

DRUGS (1)
  1. LETAIRIS [Suspect]
     Active Substance: AMBRISENTAN
     Indication: PRODUCT USED FOR UNKNOWN INDICATION
     Dosage: 5 MG, QD
     Route: 065
     Dates: start: 20131203

REACTIONS (7)
  - Kidney contusion [Unknown]
  - Transfusion [Unknown]
  - Haemoglobin decreased [Unknown]
  - Colonoscopy [Unknown]
  - Renal disorder [Unknown]
  - Cystoscopy [Unknown]
  - Haemorrhage [Unknown]
